FAERS Safety Report 23711239 (Version 1)
Quarter: 2024Q2

REPORT INFORMATION
  Report Type: Report from Study
  Country: US (occurrence: US)
  Receive Date: 20240405
  Receipt Date: 20240405
  Transmission Date: 20240716
  Serious: Yes (Other)
  Sender: FDA-Public Use
  Company Number: US-UCBSA-2024001396

PATIENT
  Age: 44 Year
  Sex: Female

DRUGS (2)
  1. ROZANOLIXIZUMAB [Suspect]
     Active Substance: ROZANOLIXIZUMAB
     Indication: Myasthenia gravis
     Dosage: UNK
     Route: 058
     Dates: start: 2023
  2. ROZANOLIXIZUMAB [Suspect]
     Active Substance: ROZANOLIXIZUMAB
     Dosage: SECOND CYCLE, WEEKLY (QW) FOR 6 WEEKS
     Route: 058
     Dates: start: 20240103

REACTIONS (5)
  - Myasthenia gravis [Unknown]
  - Fatigue [Recovering/Resolving]
  - Dysphonia [Recovering/Resolving]
  - Hypersensitivity [Recovering/Resolving]
  - Therapeutic response shortened [Unknown]

NARRATIVE: CASE EVENT DATE: 20231227
